FAERS Safety Report 19356469 (Version 1)
Quarter: 2021Q2

REPORT INFORMATION
  Report Type: Spontaneous
  Country: US (occurrence: US)
  Receive Date: 20210531
  Receipt Date: 20210531
  Transmission Date: 20210717
  Serious: Yes (Other)
  Sender: FDA-Public Use
  Company Number: US-PURDUE-USA-2020-0200297

PATIENT
  Sex: Female

DRUGS (1)
  1. OXYCODONE HCL TABLETS (RHODES 91?490) [Suspect]
     Active Substance: OXYCODONE HYDROCHLORIDE
     Indication: PAIN
     Route: 048

REACTIONS (8)
  - Visual impairment [Unknown]
  - Gastrointestinal motility disorder [Unknown]
  - Depression [Unknown]
  - Drug dependence [None]
  - Anxiety [Unknown]
  - Headache [Unknown]
  - Pruritus [Unknown]
  - Panic attack [Unknown]
